FAERS Safety Report 23323459 (Version 1)
Quarter: 2023Q4

REPORT INFORMATION
  Report Type: Spontaneous
  Country: US (occurrence: None)
  Receive Date: 20231220
  Receipt Date: 20231220
  Transmission Date: 20240109
  Serious: No
  Sender: FDA-Public Use
  Company Number: US-ROCHE-3424176

PATIENT
  Sex: Female

DRUGS (1)
  1. RITUXAN [Suspect]
     Active Substance: RITUXIMAB
     Indication: Rheumatoid arthritis
     Dosage: THE PATIENT STATED SHE HAS BEEN ON IT FOR ABOUT 6 YEARS
     Route: 065
     Dates: start: 20230912

REACTIONS (1)
  - Uterine enlargement [Unknown]
